FAERS Safety Report 11642693 (Version 4)
Quarter: 2016Q2

REPORT INFORMATION
  Report Type: Spontaneous
  Country: CA (occurrence: CA)
  Receive Date: 20151020
  Receipt Date: 20160429
  Transmission Date: 20160815
  Serious: Yes (Other)
  Sender: FDA-Public Use
  Company Number: CA-ROCHE-1646794

PATIENT
  Age: 49 Year
  Sex: Male

DRUGS (3)
  1. XOLAIR [Suspect]
     Active Substance: OMALIZUMAB
     Route: 058
     Dates: start: 20160225
  2. XOLAIR [Suspect]
     Active Substance: OMALIZUMAB
     Indication: ASTHMA
     Route: 058
     Dates: start: 20121127
  3. XOLAIR [Suspect]
     Active Substance: OMALIZUMAB
     Route: 058
     Dates: start: 20160421

REACTIONS (10)
  - Vocal cord neoplasm [Unknown]
  - Cough [Unknown]
  - Influenza [Unknown]
  - Nasal polyps [Unknown]
  - Nasopharyngitis [Unknown]
  - Dyspnoea [Unknown]
  - Hypertension [Unknown]
  - Depression [Recovering/Resolving]
  - Malaise [Unknown]
  - Pyrexia [Unknown]

NARRATIVE: CASE EVENT DATE: 201602
